FAERS Safety Report 4317581-9 (Version None)
Quarter: 2004Q1

REPORT INFORMATION
  Report Type: 
  Country: None (occurrence: None)
  Receive Date: 20040312
  Receipt Date: 20030822
  Transmission Date: 20041129
  Serious: Yes (Hospitalization)
  Sender: FDA-Public Use
  Company Number: 202089

PATIENT
  Age: 52 Year
  Sex: Female
  Weight: 58 kg

DRUGS (6)
  1. RITUXAN [Suspect]
     Indication: NON-HODGKIN'S LYMPHOMA
     Dosage: 600 MG, INTRAVENOUS
     Route: 042
     Dates: start: 20010925, end: 20020201
  2. DEXAMETHASONE [Suspect]
     Indication: NON-HODGKIN'S LYMPHOMA
     Dosage: 25 MG, INTRAVENOUS
     Route: 042
     Dates: start: 20020125, end: 20020129
  3. FLUDARABINE PHOSPHATE [Concomitant]
  4. MITOXANTRONE [Concomitant]
  5. METHYLPREDNISOLONE [Concomitant]
  6. CHLORPHENIRAMINE MALEATE [Concomitant]

REACTIONS (9)
  - ALANINE AMINOTRANSFERASE INCREASED [None]
  - ASPARTATE AMINOTRANSFERASE INCREASED [None]
  - BLOOD ALKALINE PHOSPHATASE INCREASED [None]
  - BLOOD BILIRUBIN INCREASED [None]
  - DYSPNOEA [None]
  - INFECTION [None]
  - NAUSEA [None]
  - PYREXIA [None]
  - RASH [None]
